FAERS Safety Report 8608402-4 (Version None)
Quarter: 2012Q3

REPORT INFORMATION
  Report Type: 
  Country: None (occurrence: None)
  Receive Date: 20120821
  Receipt Date: 20120808
  Transmission Date: 20120928
  Serious: Yes (Hospitalization, Other)
  Sender: FDA-Public Use
  Company Number: KR-ELI_LILLY_AND_COMPANY-KR201208003421

PATIENT
  Age: 61 Year
  Sex: Male

DRUGS (2)
  1. HUMALOG MIX 50/50 [Suspect]
     Indication: TYPE 2 DIABETES MELLITUS
     Dosage: 10 U, TID
     Route: 058
  2. HUMALOG MIX 50/50 [Suspect]
     Dosage: 16 U, TID
     Dates: start: 20120807

REACTIONS (2)
  - HYPOGLYCAEMIA [None]
  - HYPERGLYCAEMIA [None]
